FAERS Safety Report 8685090 (Version 13)
Quarter: 2015Q3

REPORT INFORMATION
  Report Type: Spontaneous
  Country: US (occurrence: US)
  Receive Date: 20120726
  Receipt Date: 20150722
  Transmission Date: 20151125
  Serious: Yes (Hospitalization, Disabling, Other)
  Sender: FDA-Public Use
  Company Number: US-MSD-1204USA02200

PATIENT
  Sex: Female
  Weight: 54.88 kg

DRUGS (14)
  1. FOSAMAX PLUS D [Suspect]
     Active Substance: ALENDRONATE SODIUM\CHOLECALCIFEROL
     Indication: OSTEOPOROSIS
     Dosage: 70 MG/2800 IU, QW
     Route: 048
     Dates: start: 20070303, end: 20070331
  2. ACTONEL [Suspect]
     Active Substance: RISEDRONATE SODIUM
     Dosage: 35 MG, UNK
     Route: 048
     Dates: start: 20041027, end: 20050119
  3. FOSAMAX [Suspect]
     Active Substance: ALENDRONATE SODIUM
     Indication: OSTEOPOROSIS
     Dosage: 10 MG, QD
     Route: 048
     Dates: start: 20000506, end: 20010602
  4. ACTONEL [Suspect]
     Active Substance: RISEDRONATE SODIUM
     Indication: OSTEOPOROSIS
     Dosage: UNK
     Dates: start: 2001
  5. ACTONEL [Suspect]
     Active Substance: RISEDRONATE SODIUM
     Dosage: 35 MG, UNK
     Route: 048
     Dates: start: 20050212, end: 20060219
  6. VITAMINS (UNSPECIFIED) [Concomitant]
     Active Substance: VITAMINS
     Dosage: 400 IU, UNK
     Dates: start: 1995
  7. ASCORBIC ACID (+) FOLIC ACID (+) VITAMIN B COMPLEX [Concomitant]
     Dosage: UNK, QD
     Dates: start: 1995
  8. ACTONEL [Suspect]
     Active Substance: RISEDRONATE SODIUM
     Dosage: 35 MG, UNK
     Route: 048
     Dates: start: 20060427, end: 20060618
  9. FOSAMAX [Suspect]
     Active Substance: ALENDRONATE SODIUM
     Dosage: 70 MG, QW
     Route: 048
     Dates: start: 20010701, end: 20010910
  10. FOSAMAX [Suspect]
     Active Substance: ALENDRONATE SODIUM
     Dosage: 70 MG, QW
     Route: 048
     Dates: start: 20011121, end: 20020326
  11. FOSAMAX [Suspect]
     Active Substance: ALENDRONATE SODIUM
     Dosage: 70 MG, QW
     Route: 048
     Dates: start: 20020824, end: 20020921
  12. ACTONEL [Suspect]
     Active Substance: RISEDRONATE SODIUM
     Dosage: 35 MG, UNK
     Route: 048
     Dates: start: 20021021, end: 20030315
  13. ACTONEL [Suspect]
     Active Substance: RISEDRONATE SODIUM
     Dosage: 35 MG, UNK
     Route: 048
     Dates: start: 20030715, end: 20040116
  14. VITAMIN D [Concomitant]
     Active Substance: CHOLECALCIFEROL
     Dosage: 2000 IU, QD
     Dates: start: 1995

REACTIONS (118)
  - Open reduction of fracture [Unknown]
  - Osteonecrosis [Unknown]
  - Glossodynia [Unknown]
  - Endodontic procedure [Unknown]
  - Spinal compression fracture [Unknown]
  - Road traffic accident [Unknown]
  - Spinal fracture [Unknown]
  - Irritable bowel syndrome [Unknown]
  - Bone loss [Unknown]
  - Endodontic procedure [Unknown]
  - Chest injury [Unknown]
  - Tooth extraction [Unknown]
  - Abdominal pain upper [Unknown]
  - Muscle spasms [Unknown]
  - Constipation [Unknown]
  - Dental caries [Unknown]
  - Mitral valve prolapse [Unknown]
  - Fall [Unknown]
  - Hyperglycaemia [Unknown]
  - Dyspnoea [Unknown]
  - Ligament sprain [Unknown]
  - Bursitis [Unknown]
  - Kyphosis [Unknown]
  - Contusion [Unknown]
  - Artificial crown procedure [Unknown]
  - Dental necrosis [Unknown]
  - Endodontic procedure [Unknown]
  - Fall [Unknown]
  - Compression fracture [Not Recovered/Not Resolved]
  - Abdominal distension [Unknown]
  - Musculoskeletal pain [Unknown]
  - Low turnover osteopathy [Unknown]
  - External fixation of fracture [Unknown]
  - Gingival recession [Unknown]
  - Gingival pain [Unknown]
  - Leukocytosis [Unknown]
  - Fall [Unknown]
  - Cachexia [Unknown]
  - Thoracic vertebral fracture [Unknown]
  - Drug intolerance [Unknown]
  - Noninfective gingivitis [Unknown]
  - Adverse event [Unknown]
  - Rash pruritic [Recovered/Resolved]
  - Abdominal distension [Unknown]
  - Anaemia postoperative [Unknown]
  - Respiratory distress [Unknown]
  - Tooth deposit [Unknown]
  - Dental plaque [Unknown]
  - Dental caries [Unknown]
  - Tooth disorder [Unknown]
  - Osteoarthritis [Unknown]
  - Multiple fractures [Unknown]
  - Atelectasis [Unknown]
  - Nodal osteoarthritis [Unknown]
  - Dental prosthesis placement [Unknown]
  - Lip swelling [Recovering/Resolving]
  - Osteonecrosis of jaw [Unknown]
  - Tooth fracture [Unknown]
  - Fatigue [Not Recovered/Not Resolved]
  - Pathological fracture [Not Recovered/Not Resolved]
  - Vitamin D deficiency [Unknown]
  - Forearm fracture [Unknown]
  - Myopathy [Unknown]
  - Compression fracture [Not Recovered/Not Resolved]
  - Osteopenia [Unknown]
  - Temporomandibular joint syndrome [Unknown]
  - Anxiety [Unknown]
  - Asthenia [Unknown]
  - Abdominal discomfort [Unknown]
  - Drug ineffective [Unknown]
  - Femur fracture [Unknown]
  - Stress fracture [Unknown]
  - Spinal fracture [Unknown]
  - Tooth fracture [Unknown]
  - Fall [Unknown]
  - Palpitations [Unknown]
  - Fall [Unknown]
  - Fall [Unknown]
  - Tooth abscess [Unknown]
  - Pain [Unknown]
  - Joint swelling [Unknown]
  - Dyspepsia [Unknown]
  - Arthralgia [Unknown]
  - Nausea [Unknown]
  - Arthralgia [Unknown]
  - Radius fracture [Unknown]
  - Humerus fracture [Unknown]
  - Tooth fracture [Unknown]
  - Tooth disorder [Unknown]
  - Gingival bleeding [Unknown]
  - Dental caries [Unknown]
  - Neuropathy peripheral [Unknown]
  - Ear pain [Recovered/Resolved]
  - Tooth extraction [Unknown]
  - Ecchymosis [Unknown]
  - Synovitis [Unknown]
  - Joint crepitation [Unknown]
  - Dental caries [Unknown]
  - Muscle disorder [Unknown]
  - Hypercementosis [Unknown]
  - Headache [Unknown]
  - Femur fracture [Unknown]
  - Hip fracture [Unknown]
  - Osteoporosis [Unknown]
  - Arthralgia [Unknown]
  - Tooth fracture [Unknown]
  - Tooth infection [Unknown]
  - Dental caries [Unknown]
  - Polymyalgia rheumatica [Not Recovered/Not Resolved]
  - Glaucoma [Unknown]
  - Hypothyroidism [Unknown]
  - Pleural effusion [Unknown]
  - Temporomandibular joint syndrome [Unknown]
  - Rheumatoid arthritis [Unknown]
  - Pain [Unknown]
  - Rash [Unknown]
  - Constipation [Unknown]
  - Abdominal pain [Unknown]

NARRATIVE: CASE EVENT DATE: 20000524
